FAERS Safety Report 23601343 (Version 1)
Quarter: 2024Q1

REPORT INFORMATION
  Report Type: Spontaneous
  Country: US (occurrence: None)
  Receive Date: 20240305
  Receipt Date: 20240305
  Transmission Date: 20240409
  Serious: Yes (Other)
  Sender: FDA-Public Use
  Company Number: None

PATIENT
  Age: 74 Year
  Sex: Female

DRUGS (2)
  1. TASIGNA [Suspect]
     Active Substance: NILOTINIB
     Indication: Lymphocytic leukaemia
     Dosage: FREQUENCY : TWICE A DAY;?
  2. METFORMIN [Concomitant]

REACTIONS (5)
  - Blood glucose increased [None]
  - Diarrhoea [None]
  - Nausea [None]
  - Feeling abnormal [None]
  - Pain [None]
